FAERS Safety Report 24398815 (Version 1)
Quarter: 2024Q4

REPORT INFORMATION
  Report Type: Spontaneous
  Country: US (occurrence: None)
  Receive Date: 20241004
  Receipt Date: 20241004
  Transmission Date: 20250114
  Serious: Yes (Other)
  Sender: Public
  Company Number: None

PATIENT
  Age: 89 Year
  Sex: Female
  Weight: 55.6 kg

DRUGS (7)
  1. CEFTRIAXONE [Suspect]
     Active Substance: CEFTRIAXONE
     Indication: Pneumonia
     Dosage: 2000 MG DAILY INTRAVENOUS
     Route: 042
     Dates: start: 20240928, end: 20241002
  2. METHENAMINE [Suspect]
     Active Substance: METHENAMINE
     Dates: start: 20240904, end: 20240916
  3. CEFUROXIME [Suspect]
     Active Substance: CEFUROXIME
     Dates: start: 20240922, end: 20240924
  4. NITROFURANTOIN [Suspect]
     Active Substance: NITROFURANTOIN
     Dates: start: 20240901, end: 20240904
  5. AZITHROMYCIN [Suspect]
     Active Substance: AZITHROMYCIN
     Dates: start: 20240928, end: 20241002
  6. CEFEPIME [Suspect]
     Active Substance: CEFEPIME HYDROCHLORIDE
     Dates: start: 20240928, end: 20240929
  7. CEFEPIME [Concomitant]
     Active Substance: CEFEPIME HYDROCHLORIDE

REACTIONS (21)
  - Mental status changes [None]
  - Asthenia [None]
  - Drug intolerance [None]
  - Food intolerance [None]
  - Urinary tract infection [None]
  - Rash [None]
  - Therapy interrupted [None]
  - Urticaria [None]
  - Blister [None]
  - Swelling [None]
  - Pyrexia [None]
  - Septic shock [None]
  - Lung consolidation [None]
  - Cystitis [None]
  - Faecaloma [None]
  - Nephrolithiasis [None]
  - Eosinophilia [None]
  - Acute generalised exanthematous pustulosis [None]
  - Sjogren^s syndrome [None]
  - Toxic epidermal necrolysis [None]
  - Severe cutaneous adverse reaction [None]

NARRATIVE: CASE EVENT DATE: 20240928
